FAERS Safety Report 7292489-8 (Version None)
Quarter: 2011Q1

REPORT INFORMATION
  Report Type: 
  Country: None (occurrence: None)
  Receive Date: 20110215
  Receipt Date: 20110204
  Transmission Date: 20110831
  Serious: Yes (Disabling, Other)
  Sender: FDA-Public Use
  Company Number: JP-JNJFOC-20110202149

PATIENT
  Sex: Female
  Weight: 58 kg

DRUGS (15)
  1. GASMOTIN [Concomitant]
     Indication: CONSTIPATION
     Route: 048
  2. DOXORUBICIN HCL [Suspect]
     Dosage: CYCLE 4
     Route: 042
  3. PURSENNID [Concomitant]
     Indication: CONSTIPATION
     Route: 048
  4. ALLEGRA [Concomitant]
     Indication: URTICARIA
     Route: 048
  5. DOXORUBICIN HCL [Suspect]
     Dosage: CYCLE 3
     Route: 042
  6. DOXORUBICIN HCL [Suspect]
     Dosage: CYCLE 2
     Route: 042
  7. PRIMPERAN TAB [Concomitant]
     Indication: NAUSEA
     Route: 048
  8. DOXORUBICIN HCL [Suspect]
     Indication: OVARIAN CANCER RECURRENT
     Dosage: CYCLE 6
     Route: 042
  9. DOXORUBICIN HCL [Suspect]
     Dosage: CYCLE 5
     Route: 042
  10. DOXORUBICIN HCL [Suspect]
     Dosage: CYCLE 1
     Route: 042
  11. MAGLAX [Concomitant]
     Indication: CONSTIPATION
     Route: 048
  12. PRIMPERAN TAB [Concomitant]
     Indication: PROPHYLAXIS
     Route: 048
  13. CYANOCOBALAMIN [Concomitant]
     Indication: SEASONAL ALLERGY
     Route: 031
  14. MECOBALAMIN [Concomitant]
     Indication: INGUINAL HERNIA REPAIR
     Route: 048
  15. ALLEGRA [Concomitant]
     Indication: SEASONAL ALLERGY
     Route: 048

REACTIONS (2)
  - PLATELET COUNT DECREASED [None]
  - INGUINAL HERNIA [None]
